FAERS Safety Report 15336212 (Version 1)
Quarter: 2018Q3

REPORT INFORMATION
  Report Type: Spontaneous
  Country: PL (occurrence: PL)
  Receive Date: 20180830
  Receipt Date: 20180830
  Transmission Date: 20181010
  Serious: Yes (Hospitalization, Other)
  Sender: FDA-Public Use
  Company Number: PL-GILEAD-2018-0360085

PATIENT
  Age: 50 Year
  Sex: Male

DRUGS (2)
  1. TIVICAY [Suspect]
     Active Substance: DOLUTEGRAVIR SODIUM
     Indication: HIV INFECTION
     Dosage: 50 MG, 1D
     Route: 065
     Dates: start: 20180604, end: 20180702
  2. DESCOVY [Suspect]
     Active Substance: EMTRICITABINE\TENOFOVIR ALAFENAMIDE FUMARATE
     Indication: PRODUCT USED FOR UNKNOWN INDICATION
     Dosage: UNK, ( 200/25)
     Route: 065

REACTIONS (3)
  - Psychotic symptom [Recovered/Resolved]
  - Abnormal behaviour [Recovered/Resolved]
  - Somatic delusion [Recovered/Resolved]

NARRATIVE: CASE EVENT DATE: 20180619
